FAERS Safety Report 25668273 (Version 1)
Quarter: 2025Q3

REPORT INFORMATION
  Report Type: Spontaneous
  Country: JP (occurrence: JP)
  Receive Date: 20250812
  Receipt Date: 20250812
  Transmission Date: 20251020
  Serious: Yes (Other)
  Sender: ASTELLAS
  Company Number: JP-ASTELLAS-2023JP012627

PATIENT
  Age: 75 Year
  Sex: Male
  Weight: 60 kg

DRUGS (8)
  1. PADCEV [Suspect]
     Active Substance: ENFORTUMAB VEDOTIN-EJFV
     Indication: Transitional cell carcinoma
     Route: 042
     Dates: start: 20231012, end: 20231026
  2. PADCEV [Suspect]
     Active Substance: ENFORTUMAB VEDOTIN-EJFV
     Indication: Metastases to bone
     Route: 042
     Dates: start: 20231124
  3. Hirudoid Soft Ointment [Concomitant]
     Indication: Dermatitis bullous
     Route: 065
     Dates: start: 20231026
  4. CLOBETASOL PROPIONATE [Concomitant]
     Active Substance: CLOBETASOL PROPIONATE
     Indication: Dermatitis bullous
     Route: 065
     Dates: start: 20231026
  5. EPINASTINE HYDROCHLORIDE [Concomitant]
     Active Substance: EPINASTINE HYDROCHLORIDE
     Indication: Dermatitis bullous
     Dosage: AFTER DINNER, FOR 7 DAYS
     Route: 048
     Dates: start: 20231026
  6. EPINASTINE HYDROCHLORIDE [Concomitant]
     Active Substance: EPINASTINE HYDROCHLORIDE
     Dosage: IN THE EVENING, FOR 14 DAYS
     Route: 048
     Dates: start: 20231109
  7. HEPARINOID LOTION [Concomitant]
     Indication: Dermatitis bullous
     Route: 065
     Dates: start: 20231102
  8. BEPOTASTINE BESYLATE [Concomitant]
     Active Substance: BEPOTASTINE BESYLATE
     Indication: Dermatitis bullous
     Dosage: IN THE MORNING AND EVENING FOR 14 DAYS
     Route: 048
     Dates: start: 20231109

REACTIONS (2)
  - Dermatitis bullous [Recovered/Resolved]
  - Taste disorder [Not Recovered/Not Resolved]

NARRATIVE: CASE EVENT DATE: 20231021
